FAERS Safety Report 24381632 (Version 1)
Quarter: 2024Q4

REPORT INFORMATION
  Report Type: Report from Study
  Country: US (occurrence: US)
  Receive Date: 20241001
  Receipt Date: 20241001
  Transmission Date: 20250114
  Serious: Yes (Other)
  Sender: JOHNSON AND JOHNSON
  Company Number: US-JNJFOC-20240963553

PATIENT
  Sex: Female

DRUGS (29)
  1. SPRAVATO [Suspect]
     Active Substance: ESKETAMINE
     Indication: Depression
     Dosage: ^56 MG, 1 TOTAL DOSE^
     Dates: start: 20201215, end: 20201215
  2. SPRAVATO [Suspect]
     Active Substance: ESKETAMINE
     Dosage: ^84 MG, 57 TOTAL DOSES^
     Dates: start: 20201216, end: 20220309
  3. SPRAVATO [Suspect]
     Active Substance: ESKETAMINE
     Dosage: ^112 MG, 1 TOTAL DOSE^
     Dates: start: 20220317, end: 20220317
  4. SPRAVATO [Suspect]
     Active Substance: ESKETAMINE
     Dosage: ^84 MG, 2 TOTAL DOSES^
     Dates: start: 20220322, end: 20220330
  5. SPRAVATO [Suspect]
     Active Substance: ESKETAMINE
     Dosage: ^112 MG, 1 TOTAL DOSE^
     Dates: start: 20220413, end: 20220413
  6. SPRAVATO [Suspect]
     Active Substance: ESKETAMINE
     Dosage: ^84 MG, 2 TOTAL DOSES^
     Dates: start: 20220426, end: 20220505
  7. SPRAVATO [Suspect]
     Active Substance: ESKETAMINE
     Dosage: ^112 MG, 1 TOTAL DOSE^
     Dates: start: 20220510, end: 20220510
  8. SPRAVATO [Suspect]
     Active Substance: ESKETAMINE
     Dosage: ^84 MG, 7 TOTAL DOSES^
     Dates: start: 20220531, end: 20220726
  9. SPRAVATO [Suspect]
     Active Substance: ESKETAMINE
     Dosage: ^112 MG, 2 TOTAL DOSES^
     Dates: start: 20220802, end: 20220810
  10. SPRAVATO [Suspect]
     Active Substance: ESKETAMINE
     Dosage: ^84 MG, 6 TOTAL DOSES^
     Dates: start: 20220823, end: 20221018
  11. SPRAVATO [Suspect]
     Active Substance: ESKETAMINE
     Dosage: ^112 MG, 1 TOTAL DOSE^
     Dates: start: 20221025, end: 20221025
  12. SPRAVATO [Suspect]
     Active Substance: ESKETAMINE
     Dosage: ^84 MG, 2 TOTAL DOSES^
     Dates: start: 20221101, end: 20221108
  13. SPRAVATO [Suspect]
     Active Substance: ESKETAMINE
     Dosage: ^112 MG, 1 TOTAL DOSE^
     Dates: start: 20221115, end: 20221115
  14. SPRAVATO [Suspect]
     Active Substance: ESKETAMINE
     Dosage: ^84 MG, 1 TOTAL DOSE^
     Dates: start: 20221129, end: 20221129
  15. SPRAVATO [Suspect]
     Active Substance: ESKETAMINE
     Dosage: ^112 MG, 1 TOTAL DOSE^
     Dates: start: 20221206, end: 20221206
  16. SPRAVATO [Suspect]
     Active Substance: ESKETAMINE
     Dosage: ^84 MG, 6 TOTAL DOSES^
     Dates: start: 20221213, end: 20230117
  17. SPRAVATO [Suspect]
     Active Substance: ESKETAMINE
     Dosage: ^112 MG, 3 TOTAL DOSES^
     Dates: start: 20230124, end: 20230214
  18. SPRAVATO [Suspect]
     Active Substance: ESKETAMINE
     Dosage: ^84 MG, 1 TOTAL DOSE^
     Dates: start: 20230228, end: 20230228
  19. SPRAVATO [Suspect]
     Active Substance: ESKETAMINE
     Dosage: ^112 MG, 5 TOTAL DOSES^
     Dates: start: 20230307, end: 20230404
  20. SPRAVATO [Suspect]
     Active Substance: ESKETAMINE
     Dosage: ^84 MG, 6 TOTAL DOSE^
     Dates: start: 20230411, end: 20230516
  21. SPRAVATO [Suspect]
     Active Substance: ESKETAMINE
     Dosage: ^112 MG, 3 TOTAL DOSES^
     Dates: start: 20230524, end: 20230606
  22. SPRAVATO [Suspect]
     Active Substance: ESKETAMINE
     Dosage: ^84 MG, 1 TOTAL DOSE^
     Dates: start: 20230612, end: 20230612
  23. SPRAVATO [Suspect]
     Active Substance: ESKETAMINE
     Dosage: ^112 MG, 1 TOTAL DOSE^
     Dates: start: 20230622, end: 20230622
  24. SPRAVATO [Suspect]
     Active Substance: ESKETAMINE
     Dosage: ^84 MG, 2 TOTAL DOSES^
     Dates: start: 20230627, end: 20230707
  25. SPRAVATO [Suspect]
     Active Substance: ESKETAMINE
     Dosage: ^112 MG, 6 TOTAL DOSES^
     Dates: start: 20230714, end: 20230815
  26. SPRAVATO [Suspect]
     Active Substance: ESKETAMINE
     Dosage: ^84 MG, 1 TOTAL DOSE^
     Dates: start: 20230822, end: 20230822
  27. SPRAVATO [Suspect]
     Active Substance: ESKETAMINE
     Dosage: ^112 MG, 5 TOTAL DOSES^
     Dates: start: 20230829, end: 20231003
  28. SPRAVATO [Suspect]
     Active Substance: ESKETAMINE
     Dosage: ^84 MG, 2 TOTAL DOSES^
     Dates: start: 20231010, end: 20231024
  29. SPRAVATO [Suspect]
     Active Substance: ESKETAMINE
     Dosage: ^112 MG, 34 TOTAL DOSES^
     Dates: start: 20231031, end: 20240717

REACTIONS (1)
  - Spinal operation [Unknown]
